FAERS Safety Report 15362255 (Version 3)
Quarter: 2018Q3

REPORT INFORMATION
  Report Type: Report from Study
  Country: CA (occurrence: CA)
  Receive Date: 20180907
  Receipt Date: 20180917
  Transmission Date: 20181010
  Serious: Yes (Other)
  Sender: FDA-Public Use
  Company Number: CA-PFIZER INC-2018357798

PATIENT
  Age: 69 Year
  Sex: Male

DRUGS (20)
  1. GABAPENTIN. [Concomitant]
     Active Substance: GABAPENTIN
     Dosage: UNK
  2. LASIX [Concomitant]
     Active Substance: FUROSEMIDE
     Dosage: UNK
  3. METOCLOPRAMIDE. [Concomitant]
     Active Substance: METOCLOPRAMIDE
     Dosage: UNK
  4. MOMETASONE FUROATE. [Concomitant]
     Active Substance: MOMETASONE FUROATE
     Dosage: UNK
  5. AMIODARONE HCL [Suspect]
     Active Substance: AMIODARONE HYDROCHLORIDE
     Dosage: UNK
     Route: 065
  6. FLONASE [Concomitant]
     Active Substance: FLUTICASONE PROPIONATE
     Indication: NASAL POLYPS
     Dosage: UNK
  7. RAMIPRIL. [Concomitant]
     Active Substance: RAMIPRIL
     Dosage: UNK
  8. SYNTHROID [Concomitant]
     Active Substance: LEVOTHYROXINE SODIUM
     Dosage: UNK
  9. ZENTRIL [Concomitant]
     Dosage: UNK
  10. SEA BREEZE [Concomitant]
     Dosage: UNK
  11. FABRAZYME [Interacting]
     Active Substance: AGALSIDASE BETA
     Indication: FABRY^S DISEASE
     Dosage: UNK
     Route: 041
     Dates: start: 2003, end: 2010
  12. VITAMIN D [Concomitant]
     Active Substance: CHOLECALCIFEROL
     Dosage: UNK
  13. NITRO [GLYCERYL TRINITRATE] [Concomitant]
     Dosage: PATCH
  14. CRESTOR [Concomitant]
     Active Substance: ROSUVASTATIN CALCIUM
     Dosage: UNK
  15. WARFARIN [Concomitant]
     Active Substance: WARFARIN
     Dosage: 7 MG, UNK
  16. HYDRALAZINE [Concomitant]
     Active Substance: HYDRALAZINE HYDROCHLORIDE
     Dosage: UNK
  17. FABRAZYME [Interacting]
     Active Substance: AGALSIDASE BETA
     Dosage: 80 MG, UNK (EVERY OTHER WEEK (QOW))
     Route: 041
     Dates: start: 20141201
  18. FOLIC ACID. [Concomitant]
     Active Substance: FOLIC ACID
     Dosage: UNK
  19. FABRAZYME [Interacting]
     Active Substance: AGALSIDASE BETA
     Dosage: 80 MG, UNK (EVERY OTHER WEEK (QOW))
     Route: 041
     Dates: start: 20141201
  20. METOPROLOL. [Concomitant]
     Active Substance: METOPROLOL
     Dosage: UNK

REACTIONS (4)
  - Drug interaction [Unknown]
  - Hypersensitivity [Unknown]
  - Cardiac failure chronic [Unknown]
  - Deafness [Unknown]

NARRATIVE: CASE EVENT DATE: 2016
